FAERS Safety Report 24187724 (Version 1)
Quarter: 2024Q3

REPORT INFORMATION
  Report Type: Spontaneous
  Country: PL (occurrence: PL)
  Receive Date: 20240808
  Receipt Date: 20240808
  Transmission Date: 20241017
  Serious: Yes (Life-Threatening, Other)
  Sender: SANOFI AVENTIS
  Company Number: None

PATIENT
  Age: 56 Year
  Sex: Male

DRUGS (3)
  1. ZOLPIDEM TARTRATE [Suspect]
     Active Substance: ZOLPIDEM TARTRATE
     Dosage: 70MG
     Route: 048
     Dates: start: 20200604, end: 20200604
  2. KETOPROFEN [Suspect]
     Active Substance: KETOPROFEN
     Dosage: 600MG
     Route: 048
     Dates: start: 20200604, end: 20200604
  3. HYDROXYZINE [Suspect]
     Active Substance: HYDROXYZINE HYDROCHLORIDE
     Dosage: 350MG
     Route: 048
     Dates: start: 20200604, end: 20200604

REACTIONS (2)
  - Loss of consciousness [Recovered/Resolved]
  - Drug abuse [Unknown]

NARRATIVE: CASE EVENT DATE: 20200604
